FAERS Safety Report 8549258-8 (Version None)
Quarter: 2012Q3

REPORT INFORMATION
  Report Type: 
  Country: None (occurrence: None)
  Receive Date: 20120730
  Receipt Date: 20120727
  Transmission Date: 20120928
  Serious: Yes (Death)
  Sender: FDA-Public Use
  Company Number: PHHY2012KR064756

PATIENT
  Sex: Female

DRUGS (3)
  1. IMATINIB MESYLATE [Suspect]
     Indication: CHRONIC MYELOID LEUKAEMIA
     Dosage: 400 MG, DAILY
     Route: 048
     Dates: start: 20061202, end: 20090201
  2. IMATINIB MESYLATE [Suspect]
     Dosage: 300 MG, DAILY
     Route: 048
     Dates: start: 20090201, end: 20120402
  3. IMATINIB MESYLATE [Suspect]
     Dosage: UNK UKN, UNK
     Route: 048
     Dates: start: 20120403

REACTIONS (1)
  - DEATH [None]
